FAERS Safety Report 9795571 (Version 2)
Quarter: 2014Q1

REPORT INFORMATION
  Report Type: Spontaneous
  Country: US (occurrence: US)
  Receive Date: 20140103
  Receipt Date: 20140129
  Transmission Date: 20141002
  Serious: Yes (Hospitalization)
  Sender: FDA-Public Use
  Company Number: US-BAYER-2014-000793

PATIENT
  Age: 43 Year
  Sex: Female
  Weight: 109.75 kg

DRUGS (4)
  1. YAZ [Suspect]
  2. SYNTHROID [Concomitant]
     Dosage: 200 ?G, UNK
  3. LEXAPRO [Concomitant]
     Dosage: 10 MG, UNK
  4. WELLBUTRIN XL [Concomitant]
     Dosage: UNK
     Dates: start: 20080123

REACTIONS (1)
  - Pulmonary embolism [Recovered/Resolved]
